FAERS Safety Report 17575776 (Version 1)
Quarter: 2020Q1

REPORT INFORMATION
  Report Type: Spontaneous
  Country: DE (occurrence: DE)
  Receive Date: 20200324
  Receipt Date: 20200324
  Transmission Date: 20200409
  Serious: Yes (Other)
  Sender: FDA-Public Use
  Company Number: DE-PFIZER INC-2020121573

PATIENT
  Age: 68 Year
  Sex: Male
  Weight: 100 kg

DRUGS (2)
  1. METHOTREXATE SODIUM. [Suspect]
     Active Substance: METHOTREXATE SODIUM
     Dosage: 10 MG, WEEKLY
     Dates: start: 20200117, end: 2020
  2. THYBON [Suspect]
     Active Substance: LIOTHYRONINE
     Dosage: 125 MG, UNK
     Dates: start: 20200216, end: 2020

REACTIONS (2)
  - Neuropathy peripheral [Not Recovered/Not Resolved]
  - Paraesthesia [Not Recovered/Not Resolved]

NARRATIVE: CASE EVENT DATE: 2020
